FAERS Safety Report 7767680-4 (Version None)
Quarter: 2011Q3

REPORT INFORMATION
  Report Type: 
  Country: None (occurrence: None)
  Receive Date: 20110922
  Receipt Date: 20110919
  Transmission Date: 20111222
  Serious: Yes (Death)
  Sender: FDA-Public Use
  Company Number: NL-PFIZER INC-2011222357

PATIENT
  Age: 83 Year
  Sex: Male

DRUGS (1)
  1. REVATIO [Suspect]
     Dosage: 20 MG, UNK
     Route: 048
     Dates: start: 20101023

REACTIONS (1)
  - DEATH [None]
